FAERS Safety Report 7521840-6 (Version None)
Quarter: 2011Q2

REPORT INFORMATION
  Report Type: 
  Country: None (occurrence: None)
  Receive Date: 20110603
  Receipt Date: 20110524
  Transmission Date: 20111010
  Serious: No
  Sender: FDA-Public Use
  Company Number: JP-CTI_01360_2011

PATIENT
  Age: 41 Year
  Sex: Male

DRUGS (1)
  1. MEIACT MS (CEFDITOREN PIVOXIL) [Suspect]
     Indication: PHARYNGITIS
     Dosage: ONCE
     Route: 048
     Dates: start: 20110521, end: 20110521

REACTIONS (3)
  - ANAPHYLACTIC SHOCK [None]
  - BLOOD PRESSURE IMMEASURABLE [None]
  - PAIN [None]
